FAERS Safety Report 8986313 (Version 1)
Quarter: 2012Q4

REPORT INFORMATION
  Report Type: 
  Country: US (occurrence: US)
  Receive Date: 20121226
  Receipt Date: 20121226
  Transmission Date: 20130627
  Serious: Yes (Other)
  Sender: FDA-Public Use
  Company Number: US-ASTRAZENECA-2012SE93727

PATIENT
  Age: 81 Year
  Sex: Male

DRUGS (2)
  1. BRILINTA [Suspect]
     Indication: CORONARY ARTERY RESTENOSIS
     Route: 048
     Dates: start: 201211
  2. PLAVIX [Concomitant]

REACTIONS (2)
  - Haemorrhage [Recovered/Resolved]
  - Staphylococcal infection [Unknown]
